FAERS Safety Report 23553391 (Version 2)
Quarter: 2024Q1

REPORT INFORMATION
  Report Type: Report from Study
  Country: ES (occurrence: ES)
  Receive Date: 20240222
  Receipt Date: 20240307
  Transmission Date: 20240410
  Serious: Yes (Hospitalization, Other)
  Sender: FDA-Public Use
  Company Number: ES-PFIZER INC-202400043894

PATIENT
  Age: 43 Year
  Sex: Female

DRUGS (5)
  1. OXALIPLATIN [Suspect]
     Active Substance: OXALIPLATIN
     Indication: Colorectal cancer metastatic
     Dosage: 85 MG/M2, CYCLIC
     Route: 042
     Dates: start: 20210420, end: 20210507
  2. LEUCOVORIN [Suspect]
     Active Substance: LEUCOVORIN\LEUCOVORIN CALCIUM
     Indication: Colorectal cancer metastatic
     Dosage: 400 MG/M2, CYCLIC (SINGLE INTRAVENOUS INFUSION)
     Route: 042
     Dates: start: 20210420, end: 20210507
  3. BEVACIZUMAB [Concomitant]
     Active Substance: BEVACIZUMAB
     Indication: Colorectal cancer metastatic
     Dosage: 5 MG/KG, CYCLIC
     Route: 042
     Dates: start: 20210420, end: 20210507
  4. FLUOROURACIL [Concomitant]
     Active Substance: FLUOROURACIL
     Indication: Colorectal cancer metastatic
     Dosage: 400 MG/M2, CYCLIC (2-4 MINUTES)
     Route: 040
     Dates: start: 20210420, end: 20210507
  5. FLUOROURACIL [Concomitant]
     Active Substance: FLUOROURACIL
     Dosage: 2400 MG/M2, CYCLIC (CONTINUOUS INTRAVENOUS INFUSION OVER 46 HOURS)
     Route: 042
     Dates: start: 20210420, end: 20210507

REACTIONS (1)
  - Hepatic function abnormal [Recovered/Resolved]

NARRATIVE: CASE EVENT DATE: 20210508
